FAERS Safety Report 5200811-9 (Version None)
Quarter: 2006Q4

REPORT INFORMATION
  Report Type: 
  Country: None (occurrence: None)
  Receive Date: 20061016
  Receipt Date: 20060713
  Transmission Date: 20070319
  Serious: No
  Sender: FDA-Public Use
  Company Number: 2006SP002701

PATIENT
  Age: 84 Year
  Sex: Male
  Weight: 189.4 kg

DRUGS (14)
  1. LUNESTA [Suspect]
     Indication: INSOMNIA
     Dosage: 1 MG; HS; ORAL
     Route: 048
     Dates: start: 20050401, end: 20050401
  2. INSULIN [Concomitant]
  3. DILTIAZEM HYDROCHLORIDE [Concomitant]
  4. ISOSORBIDE [Concomitant]
  5. DOXAZOSIN MESYLATE [Concomitant]
  6. LISINOPRIL [Concomitant]
  7. CECLOR [Concomitant]
  8. FUROSEMIDE [Concomitant]
  9. METOPROLOL SUCCINATE [Concomitant]
  10. WARFARIN SODIUM [Concomitant]
  11. PALMETTO [Concomitant]
  12. COENZYME Q10 [Concomitant]
  13. LUMIGAN [Concomitant]
  14. COSOPT [Concomitant]

REACTIONS (2)
  - DRUG INEFFECTIVE [None]
  - INITIAL INSOMNIA [None]
